FAERS Safety Report 16834023 (Version 3)
Quarter: 2021Q1

REPORT INFORMATION
  Report Type: Spontaneous
  Country: US (occurrence: US)
  Receive Date: 20190920
  Receipt Date: 20210106
  Transmission Date: 20210419
  Serious: No
  Sender: FDA-Public Use
  Company Number: US-PFIZER INC-2016101433

PATIENT
  Age: 78 Year
  Sex: Male
  Weight: 94 kg

DRUGS (4)
  1. LYRICA [Suspect]
     Active Substance: PREGABALIN
     Indication: DIABETIC NEUROPATHY
  2. LYRICA [Suspect]
     Active Substance: PREGABALIN
     Indication: POLYNEUROPATHY ALCOHOLIC
     Dosage: 100 MG, 3X/DAY (AS NEEDED)
     Route: 048
     Dates: start: 201306
  3. ALEVE [Concomitant]
     Active Substance: NAPROXEN SODIUM
     Indication: HIP ARTHROPLASTY
     Dosage: 220 MG, UNK
     Dates: start: 2018
  4. LYRICA [Suspect]
     Active Substance: PREGABALIN
     Indication: DIABETIC FOOT
     Dosage: 100 MG, 3X/DAY (AS NEEDED)
     Route: 048

REACTIONS (2)
  - Insomnia [Unknown]
  - Peripheral swelling [Unknown]
